FAERS Safety Report 24614740 (Version 1)
Quarter: 2024Q4

REPORT INFORMATION
  Report Type: Spontaneous
  Country: US (occurrence: US)
  Receive Date: 20241113
  Receipt Date: 20241113
  Transmission Date: 20250115
  Serious: Yes (Other)
  Sender: MYLAN
  Company Number: US-MYLANLABS-2024M1100506

PATIENT
  Age: 4 Month
  Sex: Male

DRUGS (3)
  1. DIPHENHYDRAMINE [Suspect]
     Active Substance: DIPHENHYDRAMINE
     Indication: Urticaria pigmentosa
     Dosage: UNK
     Route: 065
  2. LORATADINE [Suspect]
     Active Substance: LORATADINE
     Indication: Urticaria pigmentosa
     Dosage: UNK
     Route: 065
  3. SODIUM CHLORIDE [Suspect]
     Active Substance: SODIUM CHLORIDE
     Indication: Urticaria pigmentosa
     Dosage: UNK, SALINE WASHES
     Route: 065

REACTIONS (2)
  - Drug ineffective [Unknown]
  - Off label use [Unknown]
